FAERS Safety Report 4268551-0 (Version None)
Quarter: 2004Q1

REPORT INFORMATION
  Report Type: 
  Country: None (occurrence: None)
  Receive Date: 20040112
  Receipt Date: 20030611
  Transmission Date: 20041129
  Serious: Yes (Hospitalization)
  Sender: FDA-Public Use
  Company Number: PHNU2003DE02265

PATIENT
  Age: 71 Year
  Sex: Male

DRUGS (3)
  1. CIBACEN [Suspect]
     Route: 065
  2. SANDIMMUNE [Suspect]
     Indication: RENAL TRANSPLANT
     Route: 065
  3. CELLCEPT [Concomitant]
     Route: 065

REACTIONS (2)
  - BLOOD URIC ACID INCREASED [None]
  - CEREBROVASCULAR ACCIDENT [None]
